FAERS Safety Report 10062893 (Version 1)
Quarter: 2014Q2

REPORT INFORMATION
  Report Type: Spontaneous
  Country: US (occurrence: US)
  Receive Date: 20140407
  Receipt Date: 20140407
  Transmission Date: 20141212
  Serious: Yes (Death, Other)
  Sender: FDA-Public Use
  Company Number: PHHY2014US037849

PATIENT
  Age: 55 Year
  Sex: Female

DRUGS (1)
  1. DEXAMETHASONE [Suspect]
     Indication: GRANULOMA

REACTIONS (10)
  - Myocardial infarction [Fatal]
  - Pulmonary embolism [Fatal]
  - Arrhythmia [Fatal]
  - Chest pain [Fatal]
  - Granuloma [Unknown]
  - Disease recurrence [Unknown]
  - Myopathy [Unknown]
  - Psychotic disorder [Unknown]
  - Red blood cell sedimentation rate decreased [Unknown]
  - Drug effect incomplete [Unknown]
